FAERS Safety Report 13988253 (Version 2)
Quarter: 2017Q4

REPORT INFORMATION
  Report Type: Spontaneous
  Country: JP (occurrence: JP)
  Receive Date: 20170919
  Receipt Date: 20171003
  Transmission Date: 20180321
  Serious: Yes (Life-Threatening)
  Sender: FDA-Public Use
  Company Number: JP-MALLINCKRODT-T201703468

PATIENT
  Age: 47 Year
  Sex: Male
  Weight: 50 kg

DRUGS (44)
  1. METHADONE [Suspect]
     Active Substance: METHADONE HYDROCHLORIDE
     Indication: CANCER PAIN
     Dosage: 45 MG (15 MG ONE TIME DOSE)
     Route: 048
     Dates: start: 20150810, end: 20150817
  2. METHADONE [Suspect]
     Active Substance: METHADONE HYDROCHLORIDE
     Dosage: 75MG (25 MG ONE TIME DOSE)
     Route: 048
     Dates: start: 20150827, end: 20150827
  3. METHADONE [Suspect]
     Active Substance: METHADONE HYDROCHLORIDE
     Dosage: 90 MG (30 MG ONE TIME DOSE)
     Route: 048
     Dates: start: 20151116, end: 20151213
  4. TRYPTANOL [Concomitant]
     Active Substance: AMITRIPTYLINE
     Indication: ANALGESIC THERAPY
     Dosage: 10 MG
     Route: 048
     Dates: start: 20150831, end: 20150904
  5. DEXART [Concomitant]
     Active Substance: DEXAMETHASONE SODIUM PHOSPHATE
     Dosage: 6.6 MG
     Route: 051
     Dates: start: 20151008, end: 20151008
  6. DEXART [Concomitant]
     Active Substance: DEXAMETHASONE SODIUM PHOSPHATE
     Dosage: 6.6 MG
     Route: 051
     Dates: start: 20151026, end: 20151026
  7. DEXART [Concomitant]
     Active Substance: DEXAMETHASONE SODIUM PHOSPHATE
     Dosage: 6.6 MG
     Route: 051
     Dates: start: 20151214, end: 20151214
  8. ABRAXANE [Concomitant]
     Active Substance: PACLITAXEL
     Dosage: 150 MG
     Route: 051
     Dates: start: 20151008, end: 20151008
  9. ABRAXANE [Concomitant]
     Active Substance: PACLITAXEL
     Dosage: 150 MG
     Route: 051
     Dates: start: 20151130, end: 20151130
  10. ABRAXANE [Concomitant]
     Active Substance: PACLITAXEL
     Dosage: 150 MG
     Route: 051
     Dates: start: 20151214, end: 20151214
  11. METHADONE [Suspect]
     Active Substance: METHADONE HYDROCHLORIDE
     Dosage: 60 MG (20 MG ONE TIME DOSE)
     Route: 048
     Dates: start: 20150818, end: 20150826
  12. METHADONE [Suspect]
     Active Substance: METHADONE HYDROCHLORIDE
     Dosage: 60 MG (20 MG ONE TIME DOSE)
     Route: 048
     Dates: start: 20150828, end: 20151007
  13. METHADONE [Suspect]
     Active Substance: METHADONE HYDROCHLORIDE
     Dosage: 105 MG (35 MG ONE TIME DOSE)
     Route: 048
     Dates: start: 20151214, end: 20151225
  14. RINDERON V [Concomitant]
     Active Substance: BETAMETHASONE VALERATE
     Indication: ANALGESIC THERAPY
     Dosage: 0.5 MG
     Route: 048
  15. DEXART [Concomitant]
     Active Substance: DEXAMETHASONE SODIUM PHOSPHATE
     Indication: PRODUCT USED FOR UNKNOWN INDICATION
     Dosage: 6.6 MG
     Route: 051
     Dates: start: 20150825, end: 20150825
  16. DEXART [Concomitant]
     Active Substance: DEXAMETHASONE SODIUM PHOSPHATE
     Dosage: 6.6 MG
     Route: 051
     Dates: start: 20151109, end: 20151109
  17. ABRAXANE [Concomitant]
     Active Substance: PACLITAXEL
     Dosage: 150 MG
     Route: 051
     Dates: start: 20151015, end: 20151015
  18. ABRAXANE [Concomitant]
     Active Substance: PACLITAXEL
     Dosage: 150 MG
     Route: 051
     Dates: start: 20151102, end: 20151102
  19. ABRAXANE [Concomitant]
     Active Substance: PACLITAXEL
     Dosage: 150 MG
     Route: 051
     Dates: start: 20151207, end: 20151207
  20. SAWACILLIN [Concomitant]
     Active Substance: AMOXICILLIN
     Indication: PRODUCT USED FOR UNKNOWN INDICATION
     Dosage: 750 MG
     Route: 048
     Dates: start: 20151223
  21. TRYPTANOL [Concomitant]
     Active Substance: AMITRIPTYLINE
     Dosage: 25 MG (ONE TIME DOSE 25 MG)
     Route: 048
     Dates: start: 20150905, end: 20151207
  22. ABRAXANE [Concomitant]
     Active Substance: PACLITAXEL
     Dosage: 150 MG
     Route: 051
     Dates: start: 20150924, end: 20150924
  23. ABRAXANE [Concomitant]
     Active Substance: PACLITAXEL
     Dosage: 150 MG
     Route: 051
     Dates: start: 20151026, end: 20151026
  24. METHADONE [Suspect]
     Active Substance: METHADONE HYDROCHLORIDE
     Dosage: 75 MG (25 MG ONE TIME DOSE)
     Route: 048
     Dates: start: 20151008, end: 20151014
  25. METHADONE [Suspect]
     Active Substance: METHADONE HYDROCHLORIDE
     Dosage: 105 MG (35 MG ONE TIME DOSE)
     Route: 048
     Dates: start: 20151109, end: 20151115
  26. MORPHINE HYDROCHLORIDE [Concomitant]
     Active Substance: MORPHINE HYDROCHLORIDE
     Indication: ANALGESIC THERAPY
     Dosage: 8.5 MG, PRN (AS NEEDED)
     Route: 051
     Dates: start: 20150809
  27. TAKEPRON [Concomitant]
     Active Substance: LANSOPRAZOLE
     Indication: PRODUCT USED FOR UNKNOWN INDICATION
     Dosage: 15 MG
     Route: 048
  28. MAGNESIUM OXIDE. [Concomitant]
     Active Substance: MAGNESIUM OXIDE
     Indication: PRODUCT USED FOR UNKNOWN INDICATION
     Dosage: 1500 MG
     Route: 048
     Dates: start: 20150815
  29. DEXART [Concomitant]
     Active Substance: DEXAMETHASONE SODIUM PHOSPHATE
     Dosage: 6.6 MG
     Route: 051
     Dates: start: 20150924, end: 20150924
  30. DEXART [Concomitant]
     Active Substance: DEXAMETHASONE SODIUM PHOSPHATE
     Dosage: 6.6 MG
     Route: 051
     Dates: start: 20151130, end: 20151130
  31. ABRAXANE [Concomitant]
     Active Substance: PACLITAXEL
     Dosage: 150 MG
     Route: 051
     Dates: start: 20151109, end: 20151109
  32. FENTOS [Concomitant]
     Active Substance: FENTANYL
     Indication: ANALGESIC THERAPY
     Dosage: 4 MG (DAILY DOSE 4 MG)
     Route: 062
     Dates: start: 20151116
  33. BAKTAR [Concomitant]
     Active Substance: SULFAMETHOXAZOLE\TRIMETHOPRIM
     Indication: PRODUCT USED FOR UNKNOWN INDICATION
     Dosage: 1 DF
     Route: 048
     Dates: start: 20150814
  34. LYRICA [Concomitant]
     Active Substance: PREGABALIN
     Indication: ANALGESIC THERAPY
     Dosage: 300 MG
     Route: 048
  35. DEXART [Concomitant]
     Active Substance: DEXAMETHASONE SODIUM PHOSPHATE
     Dosage: 6.6 MG
     Route: 051
     Dates: start: 20151102, end: 20151102
  36. DEXART [Concomitant]
     Active Substance: DEXAMETHASONE SODIUM PHOSPHATE
     Dosage: 6.6 MG
     Route: 051
     Dates: start: 20151207, end: 20151207
  37. NOVAMIN (PROCHLORPERAZINE) [Concomitant]
     Active Substance: PROCHLORPERAZINE
     Indication: NAUSEA
     Dosage: 15 MG
     Route: 048
     Dates: end: 20151114
  38. AUGMENTIN [Concomitant]
     Active Substance: AMOXICILLIN\CLAVULANATE POTASSIUM
     Indication: PRODUCT USED FOR UNKNOWN INDICATION
     Dosage: 3 DF
     Route: 048
     Dates: start: 20151223
  39. AMITIZA [Concomitant]
     Active Substance: LUBIPROSTONE
     Indication: PRODUCT USED FOR UNKNOWN INDICATION
     Dosage: 48 MCG
     Route: 048
     Dates: start: 20150815
  40. ABRAXANE [Concomitant]
     Active Substance: PACLITAXEL
     Indication: PRODUCT USED FOR UNKNOWN INDICATION
     Dosage: 160 MG
     Route: 051
     Dates: start: 20150825, end: 20150825
  41. METHADONE [Suspect]
     Active Substance: METHADONE HYDROCHLORIDE
     Dosage: 90 MG (30 MG ONE TIME DOSE)
     Route: 048
     Dates: start: 20151015, end: 20151108
  42. LOPEMIN [Concomitant]
     Active Substance: LOPERAMIDE HYDROCHLORIDE
     Indication: PRODUCT USED FOR UNKNOWN INDICATION
     Dosage: 1 MG
     Route: 048
     Dates: start: 20150816
  43. DEXART [Concomitant]
     Active Substance: DEXAMETHASONE SODIUM PHOSPHATE
     Dosage: 6.6 MG
     Route: 051
     Dates: start: 20151015, end: 20151015
  44. OXINORM (OXYCODONE HYDROCHLORIDE) [Concomitant]
     Active Substance: OXYCODONE HYDROCHLORIDE
     Indication: ANALGESIC THERAPY
     Dosage: 20 MG, P.R.N (AS NEEDED)
     Route: 048
     Dates: start: 20150811

REACTIONS (4)
  - Dehydration [Recovering/Resolving]
  - Nausea [Recovering/Resolving]
  - Pneumonia [Not Recovered/Not Resolved]
  - Nasopharyngitis [Not Recovered/Not Resolved]

NARRATIVE: CASE EVENT DATE: 20150827
